FAERS Safety Report 4917963-8 (Version None)
Quarter: 2006Q1

REPORT INFORMATION
  Report Type: 
  Country: None (occurrence: None)
  Receive Date: 20060221
  Receipt Date: 20051007
  Transmission Date: 20060701
  Serious: Yes (Other)
  Sender: FDA-Public Use
  Company Number: US-MERCK-0510USA06233

PATIENT
  Age: 55 Year
  Sex: Male
  Weight: 68 kg

DRUGS (5)
  1. VIOXX [Suspect]
     Indication: ARTHRALGIA
     Route: 048
     Dates: start: 20030408, end: 20040609
  2. VIOXX [Suspect]
     Route: 048
  3. VIOXX [Suspect]
     Indication: MYALGIA
     Route: 048
     Dates: start: 20030408, end: 20040609
  4. VIOXX [Suspect]
     Route: 048
  5. ZYRTEC [Concomitant]
     Indication: HYPERSENSITIVITY
     Route: 065

REACTIONS (6)
  - ANXIETY [None]
  - BACK INJURY [None]
  - EMOTIONAL DISTRESS [None]
  - FEAR [None]
  - MYOCARDIAL INFARCTION [None]
  - SLEEP DISORDER [None]
